FAERS Safety Report 9342105 (Version 2)
Quarter: 2013Q4

REPORT INFORMATION
  Report Type: Spontaneous
  Country: US (occurrence: US)
  Receive Date: 20130611
  Receipt Date: 20131007
  Transmission Date: 20140711
  Serious: Yes (Other)
  Sender: FDA-Public Use
  Company Number: US-PFIZER INC-2013172507

PATIENT
  Age: 22 Year
  Sex: Female

DRUGS (4)
  1. ETHINYL ESTRADIOL/NORGESTREL [Suspect]
     Indication: CONTRACEPTION
     Dosage: UNK
     Dates: start: 20110420
  2. ETHINYL ESTRADIOL/NORGESTREL [Suspect]
     Dosage: UNK
     Dates: start: 201105
  3. ETHINYL ESTRADIOL/NORGESTREL [Suspect]
     Dosage: UNK
     Dates: start: 20110817
  4. ETHINYL ESTRADIOL/NORGESTREL [Suspect]
     Dosage: UNK
     Dates: start: 20111122

REACTIONS (4)
  - Product quality issue [Unknown]
  - Unintended pregnancy [Unknown]
  - Drug ineffective [Unknown]
  - Ovarian cyst [Unknown]
